FAERS Safety Report 7450926-X (Version None)
Quarter: 2011Q2

REPORT INFORMATION
  Report Type: 
  Country: None (occurrence: None)
  Receive Date: 20110502
  Receipt Date: 20110429
  Transmission Date: 20111010
  Serious: No
  Sender: FDA-Public Use
  Company Number: US-PFIZER INC-2011093178

PATIENT
  Sex: Male
  Weight: 86.2 kg

DRUGS (4)
  1. PROBENECID [Concomitant]
     Indication: GOUT
     Dosage: UNK
  2. ALLOPURINOL [Concomitant]
     Indication: GOUT
     Dosage: UNK
  3. CELEBREX [Suspect]
     Indication: GOUT
  4. CELEBREX [Suspect]
     Indication: RHEUMATOID ARTHRITIS
     Dosage: 200 MG AS NEEDED
     Route: 048
     Dates: start: 20110301, end: 20110301

REACTIONS (2)
  - JOINT SWELLING [None]
  - PAIN [None]
